FAERS Safety Report 8841212 (Version 2)
Quarter: 2012Q4

REPORT INFORMATION
  Report Type: Report from Study
  Country: AT (occurrence: AT)
  Receive Date: 20121015
  Receipt Date: 20121024
  Transmission Date: 20130627
  Serious: Yes (Death, Hospitalization)
  Sender: FDA-Public Use
  Company Number: AT-ROCHE-1143421

PATIENT
  Age: 59 Year
  Sex: Female
  Weight: 92 kg

DRUGS (1)
  1. TRASTUZUMAB [Suspect]
     Indication: BREAST CANCER
     Dosage: Date of last dose prior to SAE 12/Sep/2006
     Route: 042

REACTIONS (1)
  - Pulmonary embolism [Fatal]
